FAERS Safety Report 4370821-2 (Version None)
Quarter: 2004Q2

REPORT INFORMATION
  Report Type: 
  Country: None (occurrence: None)
  Receive Date: 20040601
  Receipt Date: 20040525
  Transmission Date: 20050107
  Serious: No
  Sender: FDA-Public Use
  Company Number: 04P-055-0253358-00

PATIENT
  Age: 48 Year
  Sex: Male
  Weight: 89 kg

DRUGS (1)
  1. MERIDIA [Suspect]
     Indication: OVERWEIGHT
     Dosage: 15 MG, 1 IN 1 D, PER ORAL
     Route: 048
     Dates: start: 20040305, end: 20040307

REACTIONS (2)
  - HAIRY CELL LEUKAEMIA [None]
  - LEUKOPENIA [None]
